FAERS Safety Report 19783265 (Version 3)
Quarter: 2021Q3

REPORT INFORMATION
  Report Type: Report from Study
  Country: DO (occurrence: DO)
  Receive Date: 20210902
  Receipt Date: 20210924
  Transmission Date: 20211014
  Serious: Yes (Other)
  Sender: FDA-Public Use
  Company Number: NVSC2021DO192515

PATIENT
  Age: 18 Year
  Sex: Female
  Weight: 49.89 kg

DRUGS (2)
  1. GILENYA [Suspect]
     Active Substance: FINGOLIMOD HYDROCHLORIDE
     Indication: MULTIPLE SCLEROSIS
  2. GILENYA [Suspect]
     Active Substance: FINGOLIMOD HYDROCHLORIDE
     Indication: RELAPSING-REMITTING MULTIPLE SCLEROSIS
     Dosage: 0.5 MG, QD
     Route: 048
     Dates: start: 20210820

REACTIONS (7)
  - Blood pressure fluctuation [Recovered/Resolved]
  - Crying [Unknown]
  - Heart rate decreased [Recovered/Resolved]
  - Atrioventricular block [Recovered/Resolved]
  - Depressed mood [Unknown]
  - Chest discomfort [Recovered/Resolved]
  - Suicidal ideation [Not Recovered/Not Resolved]

NARRATIVE: CASE EVENT DATE: 20210820
